FAERS Safety Report 4388148-1 (Version None)
Quarter: 2004Q2

REPORT INFORMATION
  Report Type: 
  Country: None (occurrence: None)
  Receive Date: 20040626
  Receipt Date: 20040621
  Transmission Date: 20050107
  Serious: Yes (Death, Life-Threatening)
  Sender: FDA-Public Use
  Company Number: 2004CG01193

PATIENT
  Age: 68 Year
  Sex: Male

DRUGS (4)
  1. OMEPRAZOLE [Suspect]
     Dosage: 20 MG QD PO
     Route: 048
     Dates: start: 20040308, end: 20040315
  2. COVERSYL [Suspect]
     Dosage: 2 MG QD PO
     Route: 048
     Dates: start: 20040308, end: 20040315
  3. ELISOR [Suspect]
     Dosage: 10 MG QD PO
     Route: 048
     Dates: start: 20040308, end: 20040315
  4. VIOXX [Suspect]
     Dosage: 25 MG QD PO
     Route: 048
     Dates: start: 20040308, end: 20040308

REACTIONS (2)
  - AGRANULOCYTOSIS [None]
  - SEPTIC SHOCK [None]
